FAERS Safety Report 15062148 (Version 2)
Quarter: 2018Q4

REPORT INFORMATION
  Report Type: Spontaneous
  Country: US (occurrence: US)
  Receive Date: 20180625
  Receipt Date: 20181218
  Transmission Date: 20190204
  Serious: Yes (Disabling)
  Sender: FDA-Public Use
  Company Number: US-OTSUKA-2018_015705

PATIENT
  Age: 28 Year
  Sex: Female
  Weight: 70 kg

DRUGS (5)
  1. ABILIFY [Suspect]
     Active Substance: ARIPIPRAZOLE
     Dosage: 15 MG, QD
     Route: 065
     Dates: end: 201706
  2. CLONAZEPAM. [Concomitant]
     Active Substance: CLONAZEPAM
     Indication: PRODUCT USE IN UNAPPROVED INDICATION
     Dosage: UNK
     Route: 065
  3. CONCERTA [Concomitant]
     Active Substance: METHYLPHENIDATE HYDROCHLORIDE
     Indication: PRODUCT USE IN UNAPPROVED INDICATION
     Dosage: 35 MG, QD
     Route: 065
  4. ABILIFY [Suspect]
     Active Substance: ARIPIPRAZOLE
     Dosage: 10 MG, QD
     Route: 065
  5. ABILIFY [Suspect]
     Active Substance: ARIPIPRAZOLE
     Indication: BIPOLAR DISORDER
     Dosage: 5 MG, QD
     Route: 065
     Dates: start: 201405

REACTIONS (26)
  - Iron deficiency anaemia [Unknown]
  - Anhedonia [Unknown]
  - Obsessive-compulsive disorder [Recovered/Resolved]
  - Gambling disorder [Recovered/Resolved]
  - Basophil count decreased [Unknown]
  - Social problem [Unknown]
  - Economic problem [Unknown]
  - Aspartate aminotransferase increased [Unknown]
  - Bipolar disorder [Unknown]
  - Anaemia [Unknown]
  - Pollakiuria [Unknown]
  - Muscle spasms [Unknown]
  - Insomnia [Unknown]
  - Fatigue [Unknown]
  - Injury [Unknown]
  - Mitochondrial myopathy [Unknown]
  - Compulsive shopping [Recovered/Resolved]
  - Mental impairment [Unknown]
  - Blood chloride increased [Unknown]
  - Menorrhagia [Unknown]
  - Attention deficit/hyperactivity disorder [Unknown]
  - Malaise [Unknown]
  - Blood glucose increased [Unknown]
  - Disability [Unknown]
  - Emotional distress [Unknown]
  - Alanine aminotransferase increased [Unknown]
